FAERS Safety Report 14527870 (Version 2)
Quarter: 2018Q1

REPORT INFORMATION
  Report Type: Spontaneous
  Country: US (occurrence: BR)
  Receive Date: 20180213
  Receipt Date: 20180216
  Transmission Date: 20180509
  Serious: Yes (Death, Other)
  Sender: FDA-Public Use
  Company Number: US-SUNOVION-2018SUN000437

PATIENT
  Age: 69 Year
  Sex: Male
  Weight: 60 kg

DRUGS (3)
  1. TREZOR [Concomitant]
     Active Substance: ROSUVASTATIN CALCIUM
  2. SIMVASTATIN. [Concomitant]
     Active Substance: SIMVASTATIN
  3. INDACATEROL AND GLYCOPYRROLATE [Suspect]
     Active Substance: GLYCOPYRROLATE\INDACATEROL MALEATE
     Indication: LUNG NEOPLASM MALIGNANT
     Dosage: 1 DF, QD
     Route: 055
     Dates: start: 20171115

REACTIONS (4)
  - Hepatic cancer [Fatal]
  - Malignant neoplasm progression [Fatal]
  - Lung neoplasm malignant [Fatal]
  - Product used for unknown indication [Unknown]

NARRATIVE: CASE EVENT DATE: 20171115
